FAERS Safety Report 7595704-6 (Version None)
Quarter: 2011Q3

REPORT INFORMATION
  Report Type: 
  Country: None (occurrence: None)
  Receive Date: 20110707
  Receipt Date: 20110630
  Transmission Date: 20111222
  Serious: Yes (Hospitalization)
  Sender: FDA-Public Use
  Company Number: US-ABBOTT-11P-163-0731113-00

PATIENT
  Sex: Female

DRUGS (7)
  1. HUMIRA [Suspect]
     Indication: PSORIASIS
     Dates: start: 20090101, end: 20110507
  2. METOPROLOL TARTRATE [Concomitant]
     Indication: PALPITATIONS
  3. HUMIRA [Suspect]
     Indication: PSORIATIC ARTHROPATHY
  4. GABAPENTIN [Concomitant]
     Indication: PAIN
  5. DICLOFENAC SODIUM [Concomitant]
     Indication: PAIN
  6. FLEXERIL [Concomitant]
     Indication: PAIN
     Dosage: 10MG AT HOUR OF SLEEP
  7. BENICAR [Concomitant]
     Indication: HYPERTENSION

REACTIONS (4)
  - ROTATOR CUFF SYNDROME [None]
  - FALL [None]
  - TUBERCULIN TEST POSITIVE [None]
  - UPPER LIMB FRACTURE [None]
